FAERS Safety Report 20641494 (Version 1)
Quarter: 2022Q1

REPORT INFORMATION
  Report Type: Spontaneous
  Country: ES (occurrence: ES)
  Receive Date: 20220328
  Receipt Date: 20220328
  Transmission Date: 20220423
  Serious: Yes (Other)
  Sender: FDA-Public Use
  Company Number: ES-TEVA-2022-ES-2021566

PATIENT
  Age: 52 Year
  Sex: Female

DRUGS (1)
  1. AJOVY [Suspect]
     Active Substance: FREMANEZUMAB-VFRM
     Indication: Migraine
     Dosage: AJOVY 225 MG/1.5 ML
     Route: 058

REACTIONS (10)
  - Hypersensitivity [Recovered/Resolved with Sequelae]
  - Acute generalised exanthematous pustulosis [Recovered/Resolved with Sequelae]
  - Injection site plaque [Recovered/Resolved with Sequelae]
  - Injection site vesicles [Recovered/Resolved with Sequelae]
  - Herpes zoster [Recovered/Resolved with Sequelae]
  - Injection site pustule [Recovered/Resolved with Sequelae]
  - Skin hyperpigmentation [Recovered/Resolved with Sequelae]
  - Skin exfoliation [Recovered/Resolved with Sequelae]
  - Skin reaction [Recovered/Resolved with Sequelae]
  - Injection site erosion [Recovered/Resolved with Sequelae]
